FAERS Safety Report 20128193 (Version 2)
Quarter: 2021Q4

REPORT INFORMATION
  Report Type: Spontaneous
  Country: US (occurrence: US)
  Receive Date: 20211129
  Receipt Date: 20211223
  Transmission Date: 20220303
  Serious: No
  Sender: FDA-Public Use
  Company Number: US-MYLANLABS-2021M1086092

PATIENT
  Age: 36 Year
  Sex: Female
  Weight: 55.34 kg

DRUGS (1)
  1. SCOPOLAMINE [Suspect]
     Active Substance: SCOPOLAMINE
     Indication: Morning sickness
     Dosage: 1 MILLIGRAM, QD (EVERY 3 DAYS)
     Route: 062
     Dates: start: 20211026, end: 20211105

REACTIONS (3)
  - Sensation of foreign body [Recovering/Resolving]
  - Dysphagia [Recovering/Resolving]
  - Nausea [Recovering/Resolving]
